FAERS Safety Report 17726032 (Version 7)
Quarter: 2021Q1

REPORT INFORMATION
  Report Type: Report from Study
  Country: EG (occurrence: EG)
  Receive Date: 20200429
  Receipt Date: 20210214
  Transmission Date: 20210419
  Serious: Yes (Hospitalization, Other)
  Sender: FDA-Public Use
  Company Number: EG-SEATTLE GENETICS-2020SGN00141

PATIENT
  Sex: Male

DRUGS (1)
  1. BRENTUXIMAB VEDOTIN [Suspect]
     Active Substance: BRENTUXIMAB VEDOTIN
     Indication: HODGKIN^S DISEASE
     Dosage: UNK
     Route: 042
     Dates: start: 20191215

REACTIONS (9)
  - COVID-19 [Recovered/Resolved]
  - White blood cell count decreased [Unknown]
  - Platelet count decreased [Unknown]
  - Bronchitis [Unknown]
  - Anaemia [Unknown]
  - Herpes zoster [Unknown]
  - Neutropenia [Recovered/Resolved]
  - Hypersensitivity [Recovered/Resolved]
  - Haemoglobin decreased [Unknown]
